FAERS Safety Report 17561652 (Version 1)
Quarter: 2020Q1

REPORT INFORMATION
  Report Type: Report from Study
  Country: US (occurrence: US)
  Receive Date: 20200319
  Receipt Date: 20200319
  Transmission Date: 20200409
  Serious: Yes (Hospitalization)
  Sender: FDA-Public Use
  Company Number: US-ROCHE-2569718

PATIENT
  Age: 64 Year
  Sex: Male
  Weight: 80.8 kg

DRUGS (9)
  1. IBRUTINIB [Suspect]
     Active Substance: IBRUTINIB
     Indication: CHRONIC LYMPHOCYTIC LEUKAEMIA
     Dosage: ON 19/FEB/2020, HE RECEIVED RECENT DOSE OF IBRUTINIB.
     Route: 048
     Dates: start: 20190515, end: 20200219
  2. OBINUTUZUMAB. [Suspect]
     Active Substance: OBINUTUZUMAB
     Dosage: DAY 2, CYCLE 1
     Route: 042
  3. OBINUTUZUMAB. [Suspect]
     Active Substance: OBINUTUZUMAB
     Dosage: 1000 MG IV ON DAY 8, CYCLE 1 1000 MG IV ON DAY 15, CYCLE 1 1000 MG IV ON DAY 1, CYCLE 2-6, TOTAL DOS
     Route: 042
  4. VENETOCLAX. [Suspect]
     Active Substance: VENETOCLAX
     Indication: CHRONIC LYMPHOCYTIC LEUKAEMIA
     Dosage: DAYS 1-7 CYCLE 3??ON 19/FEB/2020, HE RECEIVED RECENT DOSE OF VENETOCLAX.
     Route: 048
     Dates: start: 20190710
  5. VENETOCLAX. [Suspect]
     Active Substance: VENETOCLAX
     Dosage: DAYS 22-28, CYCLE 3
     Route: 048
  6. VENETOCLAX. [Suspect]
     Active Substance: VENETOCLAX
     Dosage: DAYS 15-21, CYCLE 3
     Route: 048
  7. VENETOCLAX. [Suspect]
     Active Substance: VENETOCLAX
     Dosage: DAYS 8-14, CYCLE 3
     Route: 048
  8. OBINUTUZUMAB. [Suspect]
     Active Substance: OBINUTUZUMAB
     Indication: CHRONIC LYMPHOCYTIC LEUKAEMIA
     Dosage: DAY 1, CYCLE 1?ON 02/OCT/2019, HE RECEIVED RECENT DOSE OF OBINUTUZUMAB.
     Route: 042
     Dates: start: 20190515, end: 20191002
  9. VENETOCLAX. [Suspect]
     Active Substance: VENETOCLAX
     Dosage: DAYS 1-28, CYCLES 4-14, TOTAL DOSE ADMINISTERED THIS COURSE: 400MG, LAST ADMINISTERED DATE: 19-FEB-2
     Route: 048

REACTIONS (1)
  - Non-cardiac chest pain [Recovering/Resolving]

NARRATIVE: CASE EVENT DATE: 20200219
